FAERS Safety Report 5857212-X (Version None)
Quarter: 2008Q3

REPORT INFORMATION
  Report Type: 
  Country: None (occurrence: None)
  Receive Date: 20080821
  Receipt Date: 20080813
  Transmission Date: 20090109
  Serious: Yes (Death, Hospitalization)
  Sender: FDA-Public Use
  Company Number: 230001M08CHN

PATIENT
  Age: 41 Year
  Sex: Male
  Weight: 77 kg

DRUGS (4)
  1. REBIF [Suspect]
     Indication: MULTIPLE SCLEROSIS
     Dosage: 6000000IU, 3 IN 1 WEEKS, SUBCUTANEOUS
     Route: 058
     Dates: start: 20080729, end: 20080731
  2. SALVIA MILTIORRHIZA ROOT [Concomitant]
  3. PREDNISONE/00044701 [Concomitant]
  4. METHYLPREDNISOLONE [Concomitant]

REACTIONS (12)
  - CARDIAC ARREST [None]
  - CARDIAC FAILURE [None]
  - FATIGUE [None]
  - HAEMOGLOBIN INCREASED [None]
  - HYPERHIDROSIS [None]
  - MYALGIA [None]
  - NAUSEA [None]
  - RESPIRATORY FAILURE [None]
  - SHOCK [None]
  - SOMNOLENCE [None]
  - VOMITING [None]
  - WHITE BLOOD CELL COUNT INCREASED [None]
